FAERS Safety Report 5595497-8 (Version None)
Quarter: 2008Q1

REPORT INFORMATION
  Report Type: 
  Country: None (occurrence: None)
  Receive Date: 20080118
  Receipt Date: 20080116
  Transmission Date: 20080703
  Serious: Yes (Other)
  Sender: FDA-Public Use
  Company Number: US-JNJFOC-20080103695

PATIENT
  Age: 75 Year
  Sex: Female

DRUGS (3)
  1. IBUPROFEN [Suspect]
     Indication: ARTHRALGIA
  2. ANGIOTENSION CONVERTING ENZYME INHIBITOR [Concomitant]
     Indication: HYPERTENSION
  3. DIURETIC [Concomitant]
     Indication: HYPERTENSION

REACTIONS (1)
  - COLITIS ISCHAEMIC [None]
